FAERS Safety Report 19692775 (Version 1)
Quarter: 2021Q3

REPORT INFORMATION
  Report Type: Spontaneous
  Country: AU (occurrence: AU)
  Receive Date: 20210812
  Receipt Date: 20210812
  Transmission Date: 20211014
  Serious: Yes (Hospitalization)
  Sender: FDA-Public Use
  Company Number: AU-ELI_LILLY_AND_COMPANY-AU202108000074

PATIENT
  Sex: Female

DRUGS (4)
  1. FASLODEX [Concomitant]
     Active Substance: FULVESTRANT
  2. NEXIUM [Concomitant]
     Active Substance: ESOMEPRAZOLE MAGNESIUM
     Dosage: UNK, UNKNOWN
  3. XGEVA [Concomitant]
     Active Substance: DENOSUMAB
     Dosage: UNK, UNKNOWN
  4. VERZENIO [Suspect]
     Active Substance: ABEMACICLIB
     Indication: PRODUCT USED FOR UNKNOWN INDICATION
     Dosage: UNK, UNKNOWN
     Route: 065

REACTIONS (6)
  - Cyst [Unknown]
  - Pain [Unknown]
  - Erythema [Unknown]
  - Lymphatic disorder [Unknown]
  - Limb discomfort [Unknown]
  - Peripheral swelling [Unknown]
